FAERS Safety Report 9196710 (Version 1)
Quarter: 2013Q1

REPORT INFORMATION
  Report Type: Spontaneous
  Country: FR (occurrence: FR)
  Receive Date: 20130328
  Receipt Date: 20130328
  Transmission Date: 20140127
  Serious: Yes (Hospitalization, Other)
  Sender: FDA-Public Use
  Company Number: FR-PFIZER INC-2013095480

PATIENT
  Age: 82 Year
  Sex: Female

DRUGS (5)
  1. TAHOR [Suspect]
     Dosage: 10 MG, 1X/DAY
     Route: 048
     Dates: start: 20130131
  2. PLAVIX [Suspect]
     Dosage: 75 MG, 2X/DAY
     Route: 048
     Dates: start: 20130131, end: 20130215
  3. CARDENSIEL [Concomitant]
     Indication: CARDIAC FAILURE
     Route: 048
  4. EUPANTOL [Concomitant]
     Route: 048
  5. KARDEGIC [Concomitant]
     Dosage: 160 MG, 1X/DAY
     Route: 048
     Dates: start: 20130131, end: 20130214

REACTIONS (5)
  - Rash [Recovered/Resolved]
  - Pyrexia [Recovering/Resolving]
  - Renal failure [Recovered/Resolved]
  - Drug reaction with eosinophilia and systemic symptoms [Unknown]
  - Coxiella test positive [Unknown]
